FAERS Safety Report 11769730 (Version 1)
Quarter: 2015Q4

REPORT INFORMATION
  Report Type: Spontaneous
  Country: IT (occurrence: IT)
  Receive Date: 20151123
  Receipt Date: 20151123
  Transmission Date: 20160304
  Serious: Yes (Hospitalization)
  Sender: FDA-Public Use
  Company Number: IT-BANPHARM-20154428

PATIENT
  Age: 65 Year
  Sex: Female

DRUGS (1)
  1. IBUPROFEN UNKNOWN PRODUCT [Suspect]
     Active Substance: IBUPROFEN
     Indication: BACK PAIN
     Dosage: DF 600MG, TID,

REACTIONS (3)
  - Pulmonary embolism [Unknown]
  - Gastritis haemorrhagic [Unknown]
  - Large intestinal ulcer [Unknown]
